FAERS Safety Report 10145208 (Version 1)
Quarter: 2014Q2

REPORT INFORMATION
  Report Type: Spontaneous
  Country: US (occurrence: US)
  Receive Date: 20140501
  Receipt Date: 20140501
  Transmission Date: 20141212
  Serious: No
  Sender: FDA-Public Use
  Company Number: US-BIOGENIDEC-2014BI036985

PATIENT
  Age: 41 Year
  Sex: Female

DRUGS (6)
  1. TECFIDERA [Suspect]
     Indication: MULTIPLE SCLEROSIS
     Route: 048
     Dates: start: 20131119
  2. MELOXICAM [Concomitant]
  3. MORPHINE [Concomitant]
  4. SYNTHROID [Concomitant]
  5. PROZAC [Concomitant]
  6. TIZANIDINE [Concomitant]

REACTIONS (1)
  - Muscle spasms [Unknown]
